FAERS Safety Report 19510201 (Version 1)
Quarter: 2021Q3

REPORT INFORMATION
  Report Type: Spontaneous
  Country: US (occurrence: US)
  Receive Date: 20210708
  Receipt Date: 20210708
  Transmission Date: 20211014
  Serious: Yes (Other)
  Sender: FDA-Public Use
  Company Number: US-EDGEWELL PERSONAL CARE, LLC-2113631

PATIENT
  Age: 4 Year
  Sex: Female

DRUGS (1)
  1. BANANA BOAT (AVOBENZONE\HOMOSALATE\OCTOCRYLENE) [Suspect]
     Active Substance: AVOBENZONE\HOMOSALATE\OCTOCRYLENE
     Indication: PROPHYLAXIS AGAINST SOLAR RADIATION
     Route: 061
     Dates: start: 20210625, end: 20210625

REACTIONS (3)
  - Blister [Recovering/Resolving]
  - Sunburn [Recovering/Resolving]
  - Burns second degree [Recovering/Resolving]

NARRATIVE: CASE EVENT DATE: 20210626
